FAERS Safety Report 14482169 (Version 3)
Quarter: 2018Q3

REPORT INFORMATION
  Report Type: Report from Study
  Country: US (occurrence: US)
  Receive Date: 20180202
  Receipt Date: 20180706
  Transmission Date: 20181010
  Serious: Yes (Hospitalization)
  Sender: FDA-Public Use
  Company Number: US-ACTELION-A-US2017-151878

PATIENT
  Age: 72 Year
  Sex: Female
  Weight: 95.24 kg

DRUGS (5)
  1. ADCIRCA [Concomitant]
     Active Substance: TADALAFIL
  2. XARELTO [Concomitant]
     Active Substance: RIVAROXABAN
  3. FISH OIL [Concomitant]
     Active Substance: FISH OIL
  4. OPSUMIT [Suspect]
     Active Substance: MACITENTAN
     Indication: PULMONARY ARTERIAL HYPERTENSION
     Dosage: 10 MG,QD
     Route: 048
  5. REMODULIN [Concomitant]
     Active Substance: TREPROSTINIL

REACTIONS (9)
  - Upper respiratory tract infection [Unknown]
  - Ear infection [Unknown]
  - Dyspnoea [Unknown]
  - Concomitant disease aggravated [Unknown]
  - Pulmonary arterial pressure increased [Unknown]
  - Paraesthesia [Unknown]
  - Sinusitis [Unknown]
  - Asthenia [Unknown]
  - Hypersensitivity [Unknown]

NARRATIVE: CASE EVENT DATE: 2018
